FAERS Safety Report 6306013-7 (Version None)
Quarter: 2009Q3

REPORT INFORMATION
  Report Type: 
  Country: None (occurrence: None)
  Receive Date: 20090812
  Receipt Date: 20090729
  Transmission Date: 20100115
  Serious: Yes (Other)
  Sender: FDA-Public Use
  Company Number: GB-PFIZER INC-2009242432

PATIENT
  Age: 50 Year

DRUGS (2)
  1. CHAMPIX [Suspect]
     Indication: SMOKING CESSATION THERAPY
     Dosage: 1 MG, 2X/DAY
     Route: 048
     Dates: start: 20090616, end: 20090628
  2. AMOXICILLIN [Concomitant]
     Indication: BRONCHITIS
     Dosage: 500 MG, UNK
     Route: 048
     Dates: start: 20090604, end: 20090611

REACTIONS (3)
  - NIGHTMARE [None]
  - PARANOIA [None]
  - SOMNAMBULISM [None]
